FAERS Safety Report 20758590 (Version 1)
Quarter: 2022Q2

REPORT INFORMATION
  Report Type: Other
  Country: US (occurrence: None)
  Receive Date: 20220427
  Receipt Date: 20220427
  Transmission Date: 20220720
  Serious: Yes (Other)
  Sender: FDA-Public Use
  Company Number: US-ROCHE-3079638

PATIENT
  Age: 51 Year
  Sex: Female
  Weight: 71.732 kg

DRUGS (15)
  1. OCREVUS [Suspect]
     Active Substance: OCRELIZUMAB
     Indication: Relapsing-remitting multiple sclerosis
     Dosage: DATE OF TREATMENT: 20/OCT/2021, 06/OCT/2021
     Route: 042
     Dates: start: 202104
  2. OCREVUS [Suspect]
     Active Substance: OCRELIZUMAB
     Indication: Primary progressive multiple sclerosis
  3. GABAPENTIN [Concomitant]
     Active Substance: GABAPENTIN
  4. PRAMIPEXOLE [Concomitant]
     Active Substance: PRAMIPEXOLE
  5. NAPROXEN [Concomitant]
     Active Substance: NAPROXEN
  6. TOPAMAX [Concomitant]
     Active Substance: TOPIRAMATE
  7. ABILIFY [Concomitant]
     Active Substance: ARIPIPRAZOLE
  8. OXYCODONE [Concomitant]
     Active Substance: OXYCODONE
  9. XANAX [Concomitant]
     Active Substance: ALPRAZOLAM
  10. HYDROXYZINE [Concomitant]
     Active Substance: HYDROXYZINE HYDROCHLORIDE
  11. VITAMIN D3 [Concomitant]
     Active Substance: CHOLECALCIFEROL
  12. ACIDOPHILUS [Concomitant]
     Active Substance: LACTOBACILLUS ACIDOPHILUS
  13. BLACK ELDERBERRY [Concomitant]
  14. IRON [Concomitant]
     Active Substance: IRON
  15. BACLOFEN [Concomitant]
     Active Substance: BACLOFEN

REACTIONS (10)
  - Multiple sclerosis relapse [Not Recovered/Not Resolved]
  - Pain [Not Recovered/Not Resolved]
  - Localised infection [Not Recovered/Not Resolved]
  - Fungal infection [Unknown]
  - Contusion [Not Recovered/Not Resolved]
  - Fall [Unknown]
  - Insomnia [Not Recovered/Not Resolved]
  - Onychoclasis [Not Recovered/Not Resolved]
  - Onychoclasis [Not Recovered/Not Resolved]
  - Nail growth abnormal [Not Recovered/Not Resolved]

NARRATIVE: CASE EVENT DATE: 20211101
